FAERS Safety Report 17824318 (Version 1)
Quarter: 2020Q2

REPORT INFORMATION
  Report Type: Spontaneous
  Country: GB (occurrence: GB)
  Receive Date: 20200526
  Receipt Date: 20200526
  Transmission Date: 20200714
  Serious: Yes (Disabling)
  Sender: FDA-Public Use
  Company Number: GB-ACCORD-181776

PATIENT
  Age: 37 Year
  Sex: Female
  Weight: 66.1 kg

DRUGS (8)
  1. DOXAZOSIN [Concomitant]
     Active Substance: DOXAZOSIN MESYLATE
     Dates: start: 20170525
  2. FOSTAIR [Concomitant]
     Active Substance: BECLOMETHASONE\FORMOTEROL
     Dates: start: 20180710
  3. AMLODIPINE [Concomitant]
     Active Substance: AMLODIPINE BESYLATE
     Dates: start: 20151203
  4. RAMIPRIL. [Concomitant]
     Active Substance: RAMIPRIL
     Dosage: ONCE DAILY DOSE TAKEN LESS FREQUENTLY
     Dates: start: 20140930
  5. SERTRALINE [Suspect]
     Active Substance: SERTRALINE HYDROCHLORIDE
     Indication: PRODUCT USED FOR UNKNOWN INDICATION
     Route: 048
     Dates: start: 20200421, end: 20200423
  6. ATORVASTATIN [Concomitant]
     Active Substance: ATORVASTATIN
     Dosage: ONCE DAILY DOSE TAKEN LESS FREQUENTLY
     Dates: start: 20170915
  7. AMITRIPTYLINE [Concomitant]
     Active Substance: AMITRIPTYLINE
     Dates: start: 20170208
  8. SALBUTAMOL [Concomitant]
     Active Substance: ALBUTEROL
     Dates: start: 20150825

REACTIONS (3)
  - Feeling abnormal [Unknown]
  - Confusional state [Recovered/Resolved]
  - Amnesia [Unknown]

NARRATIVE: CASE EVENT DATE: 20200421
